FAERS Safety Report 6475488-5 (Version None)
Quarter: 2009Q4

REPORT INFORMATION
  Report Type: 
  Country: None (occurrence: None)
  Receive Date: 20091204
  Receipt Date: 20091126
  Transmission Date: 20100525
  Serious: Yes (Hospitalization, Other)
  Sender: FDA-Public Use
  Company Number: PHHO2008JP12950

PATIENT
  Sex: Male
  Weight: 50 kg

DRUGS (17)
  1. ICL670A ICL+DISTAB [Suspect]
     Indication: HAEMOSIDEROSIS
     Dosage: UNK
     Route: 048
     Dates: start: 20071130, end: 20091119
  2. NEUPOGEN [Suspect]
     Indication: NEUTROPENIA
  3. EXJADE [Concomitant]
     Dosage: UNK
     Dates: start: 20091120
  4. TAKEPRON [Concomitant]
     Indication: REFLUX OESOPHAGITIS
  5. DIOVAN [Concomitant]
     Indication: HYPERTENSION
  6. CRAVIT [Concomitant]
     Indication: INFECTION PROPHYLAXIS
  7. ITRIZOLE [Concomitant]
     Indication: INFECTION PROPHYLAXIS
  8. MAGNESIUM OXIDE [Concomitant]
     Indication: CONSTIPATION
  9. GLAKAY [Concomitant]
     Indication: APLASTIC ANAEMIA
  10. ALFAROL [Concomitant]
     Indication: APLASTIC ANAEMIA
     Dosage: UNK
  11. BONZOL [Concomitant]
  12. KLARICID [Concomitant]
  13. GRAN [Concomitant]
  14. NORVASC [Concomitant]
  15. EVIPROSTAT [Concomitant]
  16. LASIX [Concomitant]
  17. UREPEARL [Concomitant]

REACTIONS (19)
  - ABDOMINAL PAIN [None]
  - C-REACTIVE PROTEIN INCREASED [None]
  - CHILLS [None]
  - DECREASED APPETITE [None]
  - DIARRHOEA [None]
  - DIZZINESS [None]
  - GAIT DISTURBANCE [None]
  - GENERAL PHYSICAL HEALTH DETERIORATION [None]
  - HYPOPHAGIA [None]
  - MALAISE [None]
  - MYELODYSPLASTIC SYNDROME [None]
  - NAUSEA [None]
  - NEUTROPENIA [None]
  - OROPHARYNGEAL PAIN [None]
  - PLEURAL EFFUSION [None]
  - PNEUMONIA [None]
  - PYREXIA [None]
  - RESPIRATORY DISORDER [None]
  - VOMITING [None]
